FAERS Safety Report 6789451-8 (Version None)
Quarter: 2010Q2

REPORT INFORMATION
  Report Type: 
  Country: None (occurrence: None)
  Receive Date: 20100624
  Receipt Date: 20100611
  Transmission Date: 20101027
  Serious: Yes (Other)
  Sender: FDA-Public Use
  Company Number: US-JNJCH-2010011013

PATIENT
  Age: 6 Year
  Sex: Male
  Weight: 22.2 kg

DRUGS (1)
  1. CHILDREN'S ZYRTEC ALLERGY [Suspect]
     Indication: HYPERSENSITIVITY
     Dosage: TEXT:5ML 1 TIME A DAY
     Route: 048
     Dates: start: 20100401, end: 20100420

REACTIONS (3)
  - HEART RATE INCREASED [None]
  - PRODUCT QUALITY ISSUE [None]
  - SYNCOPE [None]
